FAERS Safety Report 12729059 (Version 1)
Quarter: 2016Q3

REPORT INFORMATION
  Report Type: Spontaneous
  Country: US (occurrence: US)
  Receive Date: 20160909
  Receipt Date: 20160909
  Transmission Date: 20161109
  Serious: Yes (Other)
  Sender: FDA-Public Use
  Company Number: US-HORIZON-ACT-0208-2016

PATIENT
  Age: 11 Year
  Sex: Male

DRUGS (1)
  1. ACTIMMUNE [Suspect]
     Active Substance: INTERFERON GAMMA-1B
     Indication: CHRONIC GRANULOMATOUS DISEASE
     Dosage: 50 ?G TIW
     Route: 058
     Dates: start: 20150818, end: 2016

REACTIONS (2)
  - Lymphadenectomy [Unknown]
  - Granuloma [Unknown]

NARRATIVE: CASE EVENT DATE: 2016
